FAERS Safety Report 21751333 (Version 3)
Quarter: 2023Q2

REPORT INFORMATION
  Report Type: Report from Study
  Country: US (occurrence: US)
  Receive Date: 20221220
  Receipt Date: 20230413
  Transmission Date: 20230722
  Serious: No
  Sender: FDA-Public Use
  Company Number: US-ABBVIE-4235684

PATIENT
  Sex: Female
  Weight: 61.688 kg

DRUGS (13)
  1. RINVOQ [Suspect]
     Active Substance: UPADACITINIB
     Indication: Rheumatoid arthritis
     Dosage: FORM STRENGTH: 15 MILLIGRAM
     Route: 048
     Dates: start: 20220210, end: 20221209
  2. RINVOQ [Suspect]
     Active Substance: UPADACITINIB
     Indication: Rheumatoid arthritis
     Dosage: FORM STRENGTH: 15 MILLIGRAM
     Route: 048
     Dates: start: 202201, end: 2022
  3. RINVOQ [Suspect]
     Active Substance: UPADACITINIB
     Indication: Rheumatoid arthritis
     Dosage: FORM STRENGTH: 15 MILLIGRAM
     Route: 048
     Dates: start: 20221227, end: 20230121
  4. RINVOQ [Suspect]
     Active Substance: UPADACITINIB
     Indication: Rheumatoid arthritis
     Dosage: FIRST ADMIN DATE: 2023, FORM STRENGTH: 15 MILLIGRAM
     Route: 048
  5. TOPROL XL [Concomitant]
     Active Substance: METOPROLOL SUCCINATE
     Indication: Blood pressure measurement
     Route: 048
  6. LIALDA [Concomitant]
     Active Substance: MESALAMINE
     Indication: Colitis microscopic
     Dosage: 1.2GM
     Route: 048
  7. MOXICILLIN [Concomitant]
     Indication: Product used for unknown indication
  8. PILOCARPINE [Concomitant]
     Active Substance: PILOCARPINE
     Indication: Dry mouth
     Dosage: TIME INTERVAL: 0.33333333 DAYS: START DATE TEXT: 3 YEARS AGO
     Route: 048
     Dates: start: 2020
  9. FLONASE [Concomitant]
     Active Substance: FLUTICASONE PROPIONATE
     Indication: Product used for unknown indication
  10. CELECOXIB [Concomitant]
     Active Substance: CELECOXIB
     Indication: Arthritis
     Route: 048
  11. MUCINEX [Concomitant]
     Active Substance: GUAIFENESIN
     Indication: Product used for unknown indication
  12. BENZONATATE [Concomitant]
     Active Substance: BENZONATATE
     Indication: Product used for unknown indication
  13. XYZAL [Concomitant]
     Active Substance: LEVOCETIRIZINE DIHYDROCHLORIDE
     Indication: Product used for unknown indication

REACTIONS (11)
  - Pain [Unknown]
  - Sputum discoloured [Recovered/Resolved]
  - Drug ineffective [Unknown]
  - Ear discomfort [Recovered/Resolved]
  - Sinus congestion [Recovered/Resolved]
  - Upper respiratory tract infection [Recovered/Resolved]
  - Infection [Unknown]
  - Increased viscosity of upper respiratory secretion [Unknown]
  - Limb discomfort [Not Recovered/Not Resolved]
  - Rheumatoid arthritis [Unknown]
  - Musculoskeletal stiffness [Unknown]

NARRATIVE: CASE EVENT DATE: 20220101
